FAERS Safety Report 6492150-3 (Version None)
Quarter: 2009Q4

REPORT INFORMATION
  Report Type: 
  Country: None (occurrence: None)
  Receive Date: 20091214
  Receipt Date: 20091207
  Transmission Date: 20100525
  Serious: Yes (Hospitalization)
  Sender: FDA-Public Use
  Company Number: US-BIOGENIDEC-2008BI022845

PATIENT
  Age: 58 Year
  Sex: Male
  Weight: 95 kg

DRUGS (1)
  1. TYSABRI [Suspect]
     Indication: MULTIPLE SCLEROSIS
     Route: 042
     Dates: start: 20070510, end: 20091020

REACTIONS (6)
  - CELLULITIS [None]
  - EPIDIDYMITIS [None]
  - ESCHERICHIA URINARY TRACT INFECTION [None]
  - MENISCUS LESION [None]
  - RASH PRURITIC [None]
  - STAPHYLOCOCCAL INFECTION [None]
